FAERS Safety Report 9326472 (Version 1)
Quarter: 2013Q2

REPORT INFORMATION
  Report Type: Spontaneous
  Country: US (occurrence: None)
  Receive Date: 20130603
  Receipt Date: 20130603
  Transmission Date: 20140414
  Serious: No
  Sender: FDA-Public Use
  Company Number: None

PATIENT
  Age: 49 None
  Sex: Female

DRUGS (1)
  1. TECFIDERA [Suspect]
     Route: 048
     Dates: start: 20130620

REACTIONS (5)
  - Stomatitis [None]
  - Constipation [None]
  - Muscle spasms [None]
  - Abdominal pain [None]
  - Hunger [None]
